FAERS Safety Report 8786806 (Version 2)
Quarter: 2012Q4

REPORT INFORMATION
  Report Type: 
  Country: US (occurrence: US)
  Receive Date: 20120914
  Receipt Date: 20121010
  Transmission Date: 20130627
  Serious: No
  Sender: FDA-Public Use
  Company Number: US-VERTEX PHARMACEUTICAL INC.-AE-2012-010981

PATIENT

DRUGS (6)
  1. INCIVEK [Suspect]
     Indication: HEPATITIS C
     Dosage: 750 mg, tid
     Route: 048
     Dates: start: 201105, end: 201108
  2. PEGINTERFERON [Suspect]
     Indication: HEPATITIS C
     Dosage: 180 ?g, weekly
     Dates: start: 201105
  3. RIBAVIRIN [Suspect]
     Indication: HEPATITIS C
     Dosage: 600 mg, bid
     Dates: start: 201105
  4. LISINOPRIL [Concomitant]
  5. INSULIN [Concomitant]
  6. SYNTHROID [Concomitant]

REACTIONS (2)
  - Renal failure [Recovered/Resolved]
  - Transaminases increased [Recovered/Resolved]
